FAERS Safety Report 6972728-0 (Version None)
Quarter: 2010Q3

REPORT INFORMATION
  Report Type: 
  Country: None (occurrence: None)
  Receive Date: 20100909
  Receipt Date: 20100714
  Transmission Date: 20110219
  Serious: No
  Sender: FDA-Public Use
  Company Number: US-KINGPHARMUSA00001-K201000885

PATIENT
  Age: 67 Year
  Sex: Female
  Weight: 65.306 kg

DRUGS (1)
  1. CYTOMEL [Suspect]
     Indication: HYPOTHYROIDISM
     Dosage: 25 MCG, QD
     Route: 048
     Dates: start: 20091001

REACTIONS (9)
  - BLOOD THYROID STIMULATING HORMONE INCREASED [None]
  - CONFUSIONAL STATE [None]
  - CONSTIPATION [None]
  - DRUG EFFECT DECREASED [None]
  - FACE OEDEMA [None]
  - FATIGUE [None]
  - OEDEMA PERIPHERAL [None]
  - PSORIASIS [None]
  - WEIGHT INCREASED [None]
